FAERS Safety Report 10359788 (Version 1)
Quarter: 2014Q3

REPORT INFORMATION
  Report Type: Spontaneous
  Country: US (occurrence: None)
  Receive Date: 20140801
  Receipt Date: 20140801
  Transmission Date: 20150326
  Serious: Yes (Hospitalization)
  Sender: FDA-Public Use
  Company Number: None

PATIENT
  Age: 77 Year
  Sex: Male
  Weight: 66 kg

DRUGS (10)
  1. DEMATHASONE [Concomitant]
  2. LEUCKOVORIN [Concomitant]
  3. LISINOPRIL. [Concomitant]
     Active Substance: LISINOPRIL
  4. OXALIPLATIN. [Concomitant]
     Active Substance: OXALIPLATIN
  5. ATORVASTATIN [Concomitant]
     Active Substance: ATORVASTATIN
  6. LOSARTAN [Concomitant]
     Active Substance: LOSARTAN
  7. BEVACIZUMAB [Suspect]
     Active Substance: BEVACIZUMAB
     Indication: COLON CANCER METASTATIC
     Dosage: 330 EVERY 2 WEEKS INTRAVENOUS
     Route: 042
     Dates: start: 20140331, end: 20140609
  8. ALOXI [Concomitant]
     Active Substance: PALONOSETRON HYDROCHLORIDE
  9. FLUOROURACIL. [Concomitant]
     Active Substance: FLUOROURACIL
  10. TAMSULOSIN [Concomitant]
     Active Substance: TAMSULOSIN

REACTIONS (4)
  - Convulsion [None]
  - Encephalopathy [None]
  - Posterior reversible encephalopathy syndrome [None]
  - Hemiparesis [None]

NARRATIVE: CASE EVENT DATE: 20140629
